FAERS Safety Report 9973637 (Version 1)
Quarter: 2014Q1

REPORT INFORMATION
  Report Type: Spontaneous
  Country: US (occurrence: None)
  Receive Date: 20140218
  Receipt Date: 20140218
  Transmission Date: 20141002
  Serious: Yes (Hospitalization)
  Sender: FDA-Public Use
  Company Number: OPTN-PR-1303S-0005

PATIENT
  Sex: Male

DRUGS (2)
  1. OPTISON [Suspect]
     Indication: LEFT VENTRICULAR DYSFUNCTION
     Route: 042
     Dates: start: 2012, end: 2012
  2. OPTISON [Suspect]
     Indication: DIAGNOSTIC PROCEDURE
     Route: 042
     Dates: start: 2012, end: 2012

REACTIONS (1)
  - Anaphylactic reaction [None]
